FAERS Safety Report 4978327-4 (Version None)
Quarter: 2006Q2

REPORT INFORMATION
  Report Type: 
  Country: None (occurrence: None)
  Receive Date: 20060417
  Receipt Date: 20060329
  Transmission Date: 20061013
  Serious: Yes (Other)
  Sender: FDA-Public Use
  Company Number: DSA_27950_2006

PATIENT
  Sex: Female

DRUGS (4)
  1. ATIVAN [Suspect]
     Dosage: DF PO
     Route: 048
  2. NAMENDA [Suspect]
     Dosage: DF
  3. ARICEPT [Suspect]
     Dosage: DF
  4. SEROQUEL [Suspect]

REACTIONS (2)
  - ILL-DEFINED DISORDER [None]
  - UNEVALUABLE EVENT [None]
